FAERS Safety Report 16078928 (Version 1)
Quarter: 2019Q1

REPORT INFORMATION
  Report Type: Spontaneous
  Country: DE (occurrence: DE)
  Receive Date: 20190315
  Receipt Date: 20190315
  Transmission Date: 20190418
  Serious: Yes (Other)
  Sender: FDA-Public Use
  Company Number: PHHY2019DE026714

PATIENT
  Sex: Female
  Weight: 50 kg

DRUGS (3)
  1. FURADANTIN [Suspect]
     Active Substance: NITROFURANTOIN
     Indication: CYSTITIS
     Dosage: UNK
     Route: 065
     Dates: start: 20190117
  2. AMOXI 1A PHARMA [Suspect]
     Active Substance: AMOXICILLIN
     Indication: CYSTITIS
     Dosage: 6 G, QD
     Route: 065
     Dates: start: 20190114, end: 20190117
  3. MUCOFALK [Suspect]
     Active Substance: HERBALS\PLANTAGO OVATA LEAF
     Indication: CYSTITIS
     Dosage: UNK
     Route: 065
     Dates: start: 20190117

REACTIONS (7)
  - Flatulence [Unknown]
  - Toxicity to various agents [Unknown]
  - Diarrhoea [Recovered/Resolved]
  - Overdose [Recovered/Resolved]
  - Liver function test abnormal [Unknown]
  - Muscle spasms [Recovered/Resolved]
  - Enteritis [Recovered/Resolved]

NARRATIVE: CASE EVENT DATE: 20190116
